FAERS Safety Report 10048860 (Version 1)
Quarter: 2014Q1

REPORT INFORMATION
  Report Type: Report from Study
  Country: CA (occurrence: CA)
  Receive Date: 20140331
  Receipt Date: 20140331
  Transmission Date: 20141002
  Serious: Yes (Other)
  Sender: FDA-Public Use
  Company Number: CA-ABBVIE-14P-028-1215120-00

PATIENT
  Age: 19 Year
  Sex: Male
  Weight: 44 kg

DRUGS (1)
  1. HUMIRA [Suspect]
     Indication: CROHN^S DISEASE
     Route: 058
     Dates: start: 20140122

REACTIONS (3)
  - Tooth crowding [Not Recovered/Not Resolved]
  - Wisdom teeth removal [Recovered/Resolved]
  - Pain [Recovered/Resolved]
